FAERS Safety Report 4973832-9 (Version None)
Quarter: 2006Q2

REPORT INFORMATION
  Report Type: 
  Country: None (occurrence: None)
  Receive Date: 20060414
  Receipt Date: 20051021
  Transmission Date: 20061013
  Serious: Yes (Death)
  Sender: FDA-Public Use
  Company Number: US-MERCK-0510USA08820

PATIENT
  Age: 75 Year
  Sex: Male
  Weight: 114 kg

DRUGS (10)
  1. VIOXX [Suspect]
     Indication: ARTHRITIS
     Route: 048
     Dates: start: 20030612, end: 20040818
  2. PRINIVIL [Concomitant]
     Route: 065
  3. PROPRANOLOL HYDROCHLORIDE [Concomitant]
     Route: 065
  4. ACTOS [Concomitant]
     Route: 065
  5. HYDROCHLOROTHIAZIDE [Concomitant]
     Route: 065
  6. FLOMAX (MORNIFLUMATE) [Concomitant]
     Route: 065
  7. ZOCOR [Concomitant]
     Route: 065
  8. DARVOCET [Concomitant]
     Route: 065
  9. VALIUM [Concomitant]
     Route: 065
  10. XANAX [Concomitant]
     Route: 065

REACTIONS (9)
  - ARRHYTHMIA [None]
  - CARDIAC ARREST [None]
  - CORONARY ARTERY DISEASE [None]
  - FALL [None]
  - HAEMATURIA [None]
  - INCONTINENCE [None]
  - OVERWEIGHT [None]
  - PAIN IN EXTREMITY [None]
  - RENAL CYST [None]
